FAERS Safety Report 13191512 (Version 1)
Quarter: 2017Q1

REPORT INFORMATION
  Report Type: Spontaneous
  Country: MX (occurrence: MX)
  Receive Date: 20170207
  Receipt Date: 20170207
  Transmission Date: 20170428
  Serious: Yes (Death, Hospitalization)
  Sender: FDA-Public Use
  Company Number: MX-ROCHE-1889404

PATIENT
  Age: 72 Year
  Sex: Female

DRUGS (1)
  1. XELODA [Suspect]
     Active Substance: CAPECITABINE
     Indication: CHOLANGIOCARCINOMA
     Dosage: 7 TABLETS DAILY (4-3-0), 14 DAYS TREATEMENT AND 7 DAYS REST?DOSE:2 G IN THE MORNING AND 1.5 G IN THE
     Route: 048
     Dates: start: 20160705, end: 20160714

REACTIONS (9)
  - Disturbance in attention [Fatal]
  - Nausea [Recovered/Resolved]
  - Stomatitis [Recovered/Resolved]
  - Off label use [Fatal]
  - Vomiting [Recovered/Resolved]
  - Product use issue [Unknown]
  - Acute kidney injury [Fatal]
  - Abdominal distension [Recovered/Resolved]
  - Diarrhoea [Recovered/Resolved]

NARRATIVE: CASE EVENT DATE: 20160714
